FAERS Safety Report 16769987 (Version 1)
Quarter: 2019Q3

REPORT INFORMATION
  Report Type: Report from Study
  Country: US (occurrence: US)
  Receive Date: 20190904
  Receipt Date: 20190904
  Transmission Date: 20191005
  Serious: Yes (Other)
  Sender: FDA-Public Use
  Company Number: US-BIOGEN-2019BI00781384

PATIENT
  Sex: Female

DRUGS (1)
  1. TECFIDERA [Suspect]
     Active Substance: DIMETHYL FUMARATE
     Indication: MULTIPLE SCLEROSIS
     Route: 048
     Dates: start: 20190620

REACTIONS (4)
  - Pain in extremity [Unknown]
  - Limb discomfort [Not Recovered/Not Resolved]
  - Paraplegia [Not Recovered/Not Resolved]
  - Muscle spasms [Not Recovered/Not Resolved]
